FAERS Safety Report 7261955-3 (Version None)
Quarter: 2011Q1

REPORT INFORMATION
  Report Type: 
  Country: None (occurrence: None)
  Receive Date: 20110130
  Receipt Date: 20101129
  Transmission Date: 20110831
  Serious: No
  Sender: FDA-Public Use
  Company Number: US-ABBOTT-10P-163-0688918-00

PATIENT
  Sex: Male
  Weight: 91.254 kg

DRUGS (5)
  1. MICARDIS [Concomitant]
     Indication: BLOOD PRESSURE
  2. COREG [Concomitant]
     Indication: CARDIAC DISORDER
  3. ASPIRIN [Concomitant]
     Indication: PRODUCT USED FOR UNKNOWN INDICATION
  4. HUMIRA [Suspect]
     Indication: RHEUMATOID ARTHRITIS
     Dates: start: 20080101
  5. ZOCOR [Concomitant]
     Indication: BLOOD CHOLESTEROL INCREASED

REACTIONS (1)
  - INJECTION SITE HAEMATOMA [None]
